FAERS Safety Report 13105287 (Version 1)
Quarter: 2017Q1

REPORT INFORMATION
  Report Type: Spontaneous
  Country: CN (occurrence: CN)
  Receive Date: 20170111
  Receipt Date: 20170111
  Transmission Date: 20170428
  Serious: Yes (Disabling, Other)
  Sender: FDA-Public Use
  Company Number: CN-PFIZER INC-2017009024

PATIENT
  Age: 48 Year
  Sex: Male
  Weight: 65 kg

DRUGS (1)
  1. METHOTREXATE. [Suspect]
     Active Substance: METHOTREXATE
     Indication: CHEMOTHERAPY
     Dosage: 6 G, 1X/DAY
     Route: 041
     Dates: start: 20160928, end: 20160928

REACTIONS (2)
  - Drug clearance decreased [Recovering/Resolving]
  - Renal injury [Recovering/Resolving]

NARRATIVE: CASE EVENT DATE: 20160929
